FAERS Safety Report 13373229 (Version 2)
Quarter: 2018Q4

REPORT INFORMATION
  Report Type: Spontaneous
  Country: US (occurrence: US)
  Receive Date: 20170327
  Receipt Date: 20181119
  Transmission Date: 20190204
  Serious: Yes (Other)
  Sender: FDA-Public Use
  Company Number: US-JNJFOC-20170327245

PATIENT
  Age: 62 Year
  Sex: Male

DRUGS (2)
  1. LEVAQUIN [Suspect]
     Active Substance: LEVOFLOXACIN
     Indication: UPPER RESPIRATORY TRACT INFECTION
     Dosage: DOSE: 500 MG, 750 MG
     Route: 048
     Dates: start: 20080109, end: 20110603
  2. LEVAQUIN [Suspect]
     Active Substance: LEVOFLOXACIN
     Indication: BRONCHITIS
     Dosage: DOSE: 500 MG, 750 MG
     Route: 048
     Dates: start: 20080109, end: 20110603

REACTIONS (1)
  - Aortic aneurysm [Unknown]

NARRATIVE: CASE EVENT DATE: 20080731
